FAERS Safety Report 20473184 (Version 1)
Quarter: 2022Q1

REPORT INFORMATION
  Report Type: Other
  Country: US (occurrence: None)
  Receive Date: 20220215
  Receipt Date: 20220215
  Transmission Date: 20220423
  Serious: Yes (Other)
  Sender: FDA-Public Use
  Company Number: US-ROCHE-3020030

PATIENT

DRUGS (4)
  1. CAPECITABINE [Suspect]
     Active Substance: CAPECITABINE
     Indication: Pancreatic carcinoma
     Route: 048
  2. FLUOROURACIL\IRINOTECAN\LEUCOVORIN\OXALIPLATIN [Suspect]
     Active Substance: FLUOROURACIL\IRINOTECAN\LEUCOVORIN\OXALIPLATIN
     Indication: Pancreatic carcinoma
     Route: 065
  3. PACLITAXEL [Suspect]
     Active Substance: PACLITAXEL
     Indication: Pancreatic carcinoma
     Route: 065
  4. GEMCITABINE [Suspect]
     Active Substance: GEMCITABINE
     Indication: Pancreatic carcinoma
     Route: 065

REACTIONS (8)
  - Febrile neutropenia [Unknown]
  - Diarrhoea [Unknown]
  - Dehydration [Unknown]
  - Pneumonitis [Unknown]
  - Neuropathy peripheral [Unknown]
  - Cardiac failure congestive [Unknown]
  - Fatigue [Unknown]
  - Nausea [Unknown]
